FAERS Safety Report 8555643-0 (Version None)
Quarter: 2012Q3

REPORT INFORMATION
  Report Type: 
  Country: None (occurrence: None)
  Receive Date: 20120731
  Receipt Date: 20120727
  Transmission Date: 20120928
  Serious: Yes (Hospitalization)
  Sender: FDA-Public Use
  Company Number: US-AMGEN-USASP2012047233

PATIENT
  Sex: Female

DRUGS (3)
  1. XGEVA [Suspect]
     Indication: BREAST CANCER
  2. XGEVA [Suspect]
     Indication: PROPHYLAXIS
  3. XGEVA [Suspect]
     Indication: METASTASES TO BONE

REACTIONS (2)
  - HYPOCALCAEMIA [None]
  - MUSCLE CONTRACTIONS INVOLUNTARY [None]
